FAERS Safety Report 15819003 (Version 2)
Quarter: 2019Q1

REPORT INFORMATION
  Report Type: Report from Study
  Country: US (occurrence: US)
  Receive Date: 20190114
  Receipt Date: 20190201
  Transmission Date: 20190417
  Serious: Yes (Death)
  Sender: FDA-Public Use
  Company Number: US-ROCHE-2243652

PATIENT
  Age: 70 Year
  Sex: Male

DRUGS (28)
  1. AMLODIPINE BESYLATE. [Concomitant]
     Active Substance: AMLODIPINE BESYLATE
  2. LANTUS SOLOSTAR [Concomitant]
     Active Substance: INSULIN GLARGINE
  3. LEVOFLOXACIN. [Concomitant]
     Active Substance: LEVOFLOXACIN
  4. OMEGA-3 ACIDS [Concomitant]
     Active Substance: OMEGA-3 FATTY ACIDS
  5. POTASSIUM CHLORIDE. [Concomitant]
     Active Substance: POTASSIUM CHLORIDE
     Route: 065
  6. PREDNISONE. [Concomitant]
     Active Substance: PREDNISONE
  7. METOPROLOL TARTRATE. [Concomitant]
     Active Substance: METOPROLOL TARTRATE
  8. BETAMETHASONE DIPROPIONATE. [Concomitant]
     Active Substance: BETAMETHASONE DIPROPIONATE
  9. FLUOROMETHOLONE. [Concomitant]
     Active Substance: FLUOROMETHOLONE
  10. ESBRIET [Suspect]
     Active Substance: PIRFENIDONE
     Indication: PULMONARY FIBROSIS
     Route: 048
     Dates: start: 20170321
  11. DICLOFENAC SODIUM. [Concomitant]
     Active Substance: DICLOFENAC SODIUM
  12. METHYLPREDNISOLONE. [Concomitant]
     Active Substance: METHYLPREDNISOLONE
  13. VOLTAREN [Concomitant]
     Active Substance: DICLOFENAC SODIUM
  14. CEPHALEXIN. [Concomitant]
     Active Substance: CEPHALEXIN
  15. CIPROFLOXACIN. [Concomitant]
     Active Substance: CIPROFLOXACIN
  16. GABAPENTIN. [Concomitant]
     Active Substance: GABAPENTIN
  17. AMOXICILLIN. [Concomitant]
     Active Substance: AMOXICILLIN
  18. AZITHROMYCIN ANHYDROUS. [Concomitant]
     Active Substance: AZITHROMYCIN ANHYDROUS
  19. FINASTERIDE. [Concomitant]
     Active Substance: FINASTERIDE
  20. JANUVIA [Concomitant]
     Active Substance: SITAGLIPTIN PHOSPHATE
  21. KETOCONAZOLE. [Concomitant]
     Active Substance: KETOCONAZOLE
  22. SIMVASTATIN. [Concomitant]
     Active Substance: SIMVASTATIN
  23. BACLOFEN. [Concomitant]
     Active Substance: BACLOFEN
  24. LYRICA [Concomitant]
     Active Substance: PREGABALIN
  25. RESTASIS [Concomitant]
     Active Substance: CYCLOSPORINE
  26. SERTRALINE HCL [Concomitant]
     Active Substance: SERTRALINE HYDROCHLORIDE
  27. TAMSULOSIN HCL [Concomitant]
     Active Substance: TAMSULOSIN HYDROCHLORIDE
  28. ACETAMINOPHEN. [Concomitant]
     Active Substance: ACETAMINOPHEN

REACTIONS (1)
  - Death [Fatal]

NARRATIVE: CASE EVENT DATE: 20181223
